FAERS Safety Report 4394776-X (Version None)
Quarter: 2004Q3

REPORT INFORMATION
  Report Type: 
  Country: None (occurrence: None)
  Receive Date: 20040707
  Receipt Date: 20040622
  Transmission Date: 20050211
  Serious: Yes (Hospitalization)
  Sender: FDA-Public Use
  Company Number: 206912

PATIENT
  Age: 61 Year
  Sex: Male

DRUGS (4)
  1. AVASTIN [Suspect]
     Indication: COLORECTAL CANCER METASTATIC
     Dosage: 500 MG,  Q2W, INTRAVENOUS
     Route: 042
     Dates: start: 20040511
  2. F-FLU (FLUOROURACIL) [Concomitant]
  3. LEUCOVORIN CALCIUM [Concomitant]
  4. CPT-11 (IRINOTECAN HYDROCHLORIDE) [Concomitant]

REACTIONS (2)
  - DEEP VEIN THROMBOSIS [None]
  - PULMONARY EMBOLISM [None]
